FAERS Safety Report 7767998-5 (Version None)
Quarter: 2011Q3

REPORT INFORMATION
  Report Type: 
  Country: None (occurrence: None)
  Receive Date: 20110922
  Receipt Date: 20101004
  Transmission Date: 20111222
  Serious: No
  Sender: FDA-Public Use
  Company Number: US-ASTRAZENECA-2010SE46774

PATIENT
  Age: 228 Month
  Sex: Male
  Weight: 93 kg

DRUGS (4)
  1. SEROQUEL [Suspect]
     Dosage: 200 MG
     Route: 048
     Dates: end: 20100201
  2. LITHIUM CARBONATE [Concomitant]
     Dosage: UNK
  3. SEROQUEL [Suspect]
     Dosage: 300 MG
     Route: 048
     Dates: end: 20100201
  4. CLONIDINE [Concomitant]
     Dosage: UNK

REACTIONS (3)
  - DRUG DOSE OMISSION [None]
  - ANXIETY [None]
  - ANGER [None]
